FAERS Safety Report 22377868 (Version 1)
Quarter: 2023Q2

REPORT INFORMATION
  Report Type: Spontaneous
  Country: DK (occurrence: DK)
  Receive Date: 20230529
  Receipt Date: 20230529
  Transmission Date: 20230722
  Serious: Yes (Life-Threatening, Hospitalization, Other)
  Sender: FDA-Public Use
  Company Number: None

PATIENT
  Age: 27 Year
  Sex: Male

DRUGS (5)
  1. RISPERIDONE [Suspect]
     Active Substance: RISPERIDONE
     Indication: Condition aggravated
     Dosage: 2 MG, ONCE PER DAY
  2. RISPERIDONE [Suspect]
     Active Substance: RISPERIDONE
     Indication: Insomnia
  3. RISPERIDONE [Suspect]
     Active Substance: RISPERIDONE
     Indication: Abnormal behaviour
  4. OLANZAPINE [Suspect]
     Active Substance: OLANZAPINE
     Indication: Abnormal behaviour
     Dosage: 12.5 MG, ONCE PER DAY
  5. OLANZAPINE [Suspect]
     Active Substance: OLANZAPINE
     Indication: Insomnia

REACTIONS (4)
  - Neuroleptic malignant syndrome [Recovering/Resolving]
  - Urinary retention [Recovering/Resolving]
  - Gait inability [Recovering/Resolving]
  - Jaundice [Unknown]
